FAERS Safety Report 10595991 (Version 1)
Quarter: 2014Q4

REPORT INFORMATION
  Report Type: Spontaneous
  Country: FR (occurrence: FR)
  Receive Date: 20141120
  Receipt Date: 20141120
  Transmission Date: 20150529
  Serious: Yes (Hospitalization)
  Sender: FDA-Public Use
  Company Number: FR-SA-2014SA157312

PATIENT
  Age: 81 Year
  Sex: Female

DRUGS (8)
  1. MODURETIC 5-50 [Suspect]
     Active Substance: AMILORIDE HYDROCHLORIDE\HYDROCHLOROTHIAZIDE
     Indication: HYPERTENSION
     Route: 048
  2. LOXEN [Concomitant]
     Active Substance: NICARDIPINE HYDROCHLORIDE
  3. ELISOR [Concomitant]
     Active Substance: PRAVASTATIN SODIUM
  4. KARDEGIC [Concomitant]
     Active Substance: ASPIRIN LYSINE
  5. LOPRIL /FRA/ [Concomitant]
  6. TEMESTA [Suspect]
     Active Substance: LORAZEPAM
     Indication: ANXIETY
     Route: 048
  7. AMAREL [Suspect]
     Active Substance: GLIMEPIRIDE
     Indication: TYPE 2 DIABETES MELLITUS
     Route: 048
  8. LAROXYL [Suspect]
     Active Substance: AMITRIPTYLINE
     Indication: ANXIETY
     Dosage: DOSE:2 DROPS/DAY
     Route: 048

REACTIONS (1)
  - Coma [Recovered/Resolved]

NARRATIVE: CASE EVENT DATE: 20140929
